FAERS Safety Report 22350517 (Version 1)
Quarter: 2023Q2

REPORT INFORMATION
  Report Type: Spontaneous
  Country: US (occurrence: None)
  Receive Date: 20230521
  Receipt Date: 20230521
  Transmission Date: 20230722
  Serious: No
  Sender: FDA-Public Use
  Company Number: None

PATIENT
  Age: 36 Year
  Sex: Female
  Weight: 45 kg

DRUGS (2)
  1. CERAVE DEVELOPED WITH DERMATOLOGISTS ECZEMA RELIEF CREAMY [Suspect]
     Active Substance: OATMEAL
     Indication: Eczema
     Dosage: FREQUENCY : AS NEEDED;?
     Route: 061
  2. AVEENO DAILY MOISTURIZING [Suspect]
     Active Substance: DIMETHICONE
     Dosage: FREQUENCY : AS NEEDED;?

REACTIONS (2)
  - Application site rash [None]
  - Application site vesicles [None]

NARRATIVE: CASE EVENT DATE: 20230521
